FAERS Safety Report 5011470-2 (Version None)
Quarter: 2006Q2

REPORT INFORMATION
  Report Type: 
  Country: None (occurrence: None)
  Receive Date: 20060404
  Receipt Date: 20060123
  Transmission Date: 20061013
  Serious: No
  Sender: FDA-Public Use
  Company Number: US200601004411

PATIENT
  Age: 56 Year
  Sex: Female

DRUGS (11)
  1. ZYPREXA [Suspect]
     Indication: SLEEP DISORDER
     Dosage: SEE IMAGE
     Route: 048
     Dates: start: 20050722, end: 20060119
  2. CYMBALTA [Suspect]
     Indication: HEADACHE
     Dosage: SEE IMAGE
     Route: 048
     Dates: end: 20060201
  3. CYMBALTA [Suspect]
     Indication: HEADACHE
     Dosage: SEE IMAGE
     Route: 048
     Dates: start: 20050616
  4. VERAPAMIL [Concomitant]
  5. MAGNESIUM (MAGNESIUM) [Concomitant]
  6. MELATONIN (MELATONIN UNKNOWN FORMULATION) [Concomitant]
  7. HYDROXYUREA [Concomitant]
  8. BOTOX [Concomitant]
  9. IMITREX [Concomitant]
  10. PREDNISONE TAB [Concomitant]
  11. METHERGINE [Concomitant]

REACTIONS (3)
  - CONSTIPATION [None]
  - EXTRAPYRAMIDAL DISORDER [None]
  - OEDEMA PERIPHERAL [None]
